FAERS Safety Report 11753048 (Version 3)
Quarter: 2024Q1

REPORT INFORMATION
  Report Type: Other
  Country: US (occurrence: None)
  Receive Date: 20151119
  Receipt Date: 20240220
  Transmission Date: 20240410
  Serious: Yes (Life-Threatening, Other)
  Sender: FDA-Public Use
  Company Number: US-ROCHE-1663284

PATIENT

DRUGS (1)
  1. BEVACIZUMAB [Suspect]
     Active Substance: BEVACIZUMAB
     Indication: Glioblastoma
     Dosage: BEV ON DAYS 1, 15, AND 29 OF EACH 6-WEEK CYCLE
     Route: 042

REACTIONS (38)
  - Hypertriglyceridaemia [Unknown]
  - Diarrhoea [Recovered/Resolved]
  - Myelosuppression [Unknown]
  - Febrile neutropenia [Unknown]
  - Anal fistula [Unknown]
  - Confusional state [Unknown]
  - Aphasia [Unknown]
  - Fatigue [Unknown]
  - Hypertension [Unknown]
  - Lymphocyte count decreased [Unknown]
  - Neutrophil count decreased [Unknown]
  - Seizure [Unknown]
  - Ataxia [Unknown]
  - Neutropenia [Unknown]
  - Abdominal pain [Unknown]
  - Alopecia [Unknown]
  - Arthralgia [Unknown]
  - Back pain [Unknown]
  - Eye pain [Unknown]
  - Flushing [Unknown]
  - Headache [Unknown]
  - Memory impairment [Unknown]
  - Myalgia [Unknown]
  - Nasal congestion [Unknown]
  - Nausea [Recovered/Resolved]
  - Hypoaesthesia [Unknown]
  - Pain in extremity [Unknown]
  - Peripheral sensory neuropathy [Unknown]
  - Platelet count decreased [Unknown]
  - Rash [Unknown]
  - White blood cell count decreased [Unknown]
  - Thrombocytopenia [Unknown]
  - Transaminases increased [Unknown]
  - Cardiotoxicity [Unknown]
  - Toxicity to various agents [Unknown]
  - Vomiting [Recovered/Resolved]
  - Peripheral sensory neuropathy [Unknown]
  - Haemorrhage [Unknown]
